FAERS Safety Report 7763521-X (Version None)
Quarter: 2011Q3

REPORT INFORMATION
  Report Type: 
  Country: None (occurrence: None)
  Receive Date: 20110920
  Receipt Date: 20110912
  Transmission Date: 20111222
  Serious: Yes (Other)
  Sender: FDA-Public Use
  Company Number: US-GENENTECH-322376

PATIENT
  Sex: Female
  Weight: 119.27 kg

DRUGS (5)
  1. XOLAIR [Suspect]
     Indication: ASTHMA
     Dosage: 300 MG, Q2W
     Route: 058
     Dates: start: 20090603
  2. SPIRIVA [Concomitant]
     Indication: PRODUCT USED FOR UNKNOWN INDICATION
  3. ADVAIR DISKUS 100/50 [Concomitant]
     Indication: PRODUCT USED FOR UNKNOWN INDICATION
  4. PREDNISONE [Concomitant]
     Indication: PRODUCT USED FOR UNKNOWN INDICATION
  5. MAXAIR [Concomitant]
     Indication: PRODUCT USED FOR UNKNOWN INDICATION

REACTIONS (7)
  - FLUSHING [None]
  - DYSPNOEA [None]
  - LACRIMATION INCREASED [None]
  - PANIC ATTACK [None]
  - COUGH [None]
  - WHEEZING [None]
  - PRURITUS [None]
